FAERS Safety Report 9120230 (Version 1)
Quarter: 2013Q1

REPORT INFORMATION
  Report Type: Spontaneous
  Country: US (occurrence: US)
  Receive Date: 20130226
  Receipt Date: 20130226
  Transmission Date: 20140127
  Serious: Yes (Other)
  Sender: FDA-Public Use
  Company Number: US-JNJFOC-20090901427

PATIENT
  Sex: Male

DRUGS (1)
  1. LEVAQUIN [Suspect]
     Indication: INFECTION
     Route: 048
     Dates: start: 200402, end: 200402

REACTIONS (4)
  - Tendon rupture [Recovering/Resolving]
  - Tenosynovitis [Unknown]
  - Tendon rupture [Unknown]
  - Muscular weakness [Unknown]
